FAERS Safety Report 20749439 (Version 2)
Quarter: 2022Q2

REPORT INFORMATION
  Report Type: Spontaneous
  Country: AR (occurrence: AR)
  Receive Date: 20220426
  Receipt Date: 20220511
  Transmission Date: 20220721
  Serious: Yes (Other)
  Sender: FDA-Public Use
  Company Number: AR-NOVARTISPH-NVSC2022AR093259

PATIENT
  Sex: Female

DRUGS (1)
  1. EXELON [Suspect]
     Active Substance: RIVASTIGMINE TARTRATE
     Indication: Cognitive disorder
     Dosage: 1 DOSAGE FORM, QD
     Route: 065
     Dates: start: 2014, end: 201502

REACTIONS (6)
  - Haematemesis [Recovering/Resolving]
  - Vomiting [Recovering/Resolving]
  - Malaise [Recovering/Resolving]
  - Oropharyngeal pain [Recovering/Resolving]
  - Product use in unapproved indication [Unknown]
  - Off label use [Unknown]
